FAERS Safety Report 7972467 (Version 3)
Quarter: 2014Q2

REPORT INFORMATION
  Report Type: Spontaneous
  Country: US (occurrence: US)
  Receive Date: 20110603
  Receipt Date: 20140410
  Transmission Date: 20141212
  Serious: Yes (Other)
  Sender: FDA-Public Use
  Company Number: US-BAYER-2010-002594

PATIENT
  Age: 46 Year
  Sex: Female
  Weight: 79.37 kg

DRUGS (2)
  1. YAZ [Suspect]
     Dosage: UNK
     Route: 048
     Dates: start: 20060612, end: 200609
  2. TYLENOL [PARACETAMOL] [Concomitant]
     Dosage: 500 MG, UNK
     Route: 048

REACTIONS (2)
  - Cholelithiasis [None]
  - Cholecystitis [None]
